FAERS Safety Report 8272952-3 (Version None)
Quarter: 2012Q2

REPORT INFORMATION
  Report Type: 
  Country: None (occurrence: None)
  Receive Date: 20120411
  Receipt Date: 20120302
  Transmission Date: 20120825
  Serious: No
  Sender: FDA-Public Use
  Company Number: US-BAYER-2012-022235

PATIENT
  Age: 60 Year
  Sex: Male

DRUGS (3)
  1. NEXAVAR [Suspect]
     Indication: MALIGNANT SOFT TISSUE NEOPLASM
     Dosage: 200 MG, QID
     Route: 048
     Dates: start: 20120207
  2. LYRICA [Concomitant]
  3. CELEBREX [Concomitant]

REACTIONS (1)
  - DIARRHOEA [None]
